FAERS Safety Report 20376801 (Version 1)
Quarter: 2022Q1

REPORT INFORMATION
  Report Type: 
  Country: IT (occurrence: IT)
  Receive Date: 20220125
  Receipt Date: 20220125
  Transmission Date: 20220423
  Serious: Yes (Death, Other)
  Sender: FDA-Public Use
  Company Number: IT-PPDUS-2022ST000013

PATIENT

DRUGS (1)
  1. ELZONRIS [Suspect]
     Active Substance: TAGRAXOFUSP-ERZS
     Indication: Acute myeloid leukaemia
     Dosage: 1-3 DAY/CYCLE AT APPROVED DOSE
     Route: 042

REACTIONS (4)
  - Pneumonia [Fatal]
  - Transaminases increased [Unknown]
  - Pyrexia [Unknown]
  - Off label use [Unknown]
